FAERS Safety Report 10222071 (Version 2)
Quarter: 2014Q2

REPORT INFORMATION
  Report Type: Report from Study
  Country: GB (occurrence: GB)
  Receive Date: 20140606
  Receipt Date: 20140606
  Transmission Date: 20141212
  Serious: No
  Sender: FDA-Public Use
  Company Number: GB-BIOMARINAP-GB-2014-102751

PATIENT
  Age: 16 Year
  Sex: Male

DRUGS (6)
  1. NAGLAZYME [Suspect]
     Indication: MUCOPOLYSACCHARIDOSIS VI
     Dosage: 1 MG/KG, QW
     Route: 041
     Dates: start: 20121212
  2. GABAPENTIN [Concomitant]
     Indication: PAIN
     Dosage: 900 MG, TID
     Route: 048
     Dates: start: 2011, end: 20130710
  3. GABAPENTIN [Concomitant]
     Dosage: 1200 MG, TID
     Route: 048
     Dates: start: 20130710
  4. DICLOFENAC [Concomitant]
     Indication: PAIN
     Dosage: UNK
     Route: 048
     Dates: start: 2011, end: 2013
  5. CO-CODAMOL [Concomitant]
     Indication: PAIN
     Dosage: UNK
     Route: 048
     Dates: start: 2011
  6. OMEPRAZOLE [Concomitant]
     Indication: DYSPEPSIA
     Dosage: 20 MG, QD
     Route: 048
     Dates: start: 20130710

REACTIONS (1)
  - Neck pain [Not Recovered/Not Resolved]
